FAERS Safety Report 6445654-3 (Version None)
Quarter: 2009Q4

REPORT INFORMATION
  Report Type: 
  Country: None (occurrence: None)
  Receive Date: 20091118
  Receipt Date: 20091118
  Transmission Date: 20100525
  Serious: Yes (Other)
  Sender: FDA-Public Use
  Company Number: None

PATIENT
  Age: 70 Year
  Sex: Female
  Weight: 58.0604 kg

DRUGS (1)
  1. LOVAZA [Suspect]
     Indication: LOW DENSITY LIPOPROTEIN INCREASED
     Dosage: 1 CAPSULE EVERY DAY PO
     Route: 048
     Dates: start: 20091001, end: 20091008

REACTIONS (2)
  - ARTHRITIS [None]
  - LOW DENSITY LIPOPROTEIN INCREASED [None]
